FAERS Safety Report 9366476 (Version 2)
Quarter: 2013Q3

REPORT INFORMATION
  Report Type: Spontaneous
  Country: IT (occurrence: IT)
  Receive Date: 20130625
  Receipt Date: 20130703
  Transmission Date: 20140515
  Serious: Yes (Hospitalization)
  Sender: FDA-Public Use
  Company Number: IT-JNJFOC-20130607501

PATIENT
  Age: 44 Year
  Sex: Male

DRUGS (5)
  1. VERMOX [Suspect]
     Indication: INFECTION PARASITIC
     Route: 048
     Dates: start: 20130228, end: 20130317
  2. NIMESULIDE [Suspect]
     Indication: HEADACHE
     Route: 048
     Dates: start: 20130301, end: 20130301
  3. ZENTEL [Suspect]
     Indication: INFECTION PARASITIC
     Route: 048
     Dates: start: 20130228, end: 20130317
  4. REPAGLINIDE [Concomitant]
     Indication: DIABETES MELLITUS
     Route: 048
     Dates: start: 20090601
  5. SIMVASTATIN [Concomitant]
     Indication: HYPERCHOLESTEROLAEMIA
     Route: 048
     Dates: start: 20090601

REACTIONS (2)
  - Erythema [Recovering/Resolving]
  - Skin exfoliation [Recovering/Resolving]
